FAERS Safety Report 9668143 (Version 1)
Quarter: 2013Q4

REPORT INFORMATION
  Report Type: Spontaneous
  Country: US (occurrence: None)
  Receive Date: 20131101
  Receipt Date: 20131101
  Transmission Date: 20140711
  Serious: Yes (Other)
  Sender: FDA-Public Use
  Company Number: 99088

PATIENT
  Sex: Male

DRUGS (1)
  1. MENTHOL [Suspect]
     Indication: ANALGESIC THERAPY
     Route: 061

REACTIONS (4)
  - Pain [None]
  - Blister [None]
  - Pain in extremity [None]
  - Pain in extremity [None]
